FAERS Safety Report 7981634-4 (Version None)
Quarter: 2011Q4

REPORT INFORMATION
  Report Type: 
  Country: None (occurrence: None)
  Receive Date: 20111213
  Receipt Date: 20111213
  Transmission Date: 20120403
  Serious: Yes (Life-Threatening)
  Sender: FDA-Public Use
  Company Number: DAV-AE-ATE-11-06

PATIENT
  Age: 65 Year
  Sex: Female

DRUGS (5)
  1. QUINAPRIL [Concomitant]
  2. ESCITALOPRAM [Concomitant]
  3. ATENOLOL [Suspect]
     Indication: HYPERTENSION
  4. AMITRIPTYLINE HCL [Concomitant]
  5. VENLAFAXINE [Concomitant]

REACTIONS (6)
  - HYPOKALAEMIA [None]
  - MULTIPLE DRUG OVERDOSE [None]
  - CARDIOGENIC SHOCK [None]
  - CARDIO-RESPIRATORY ARREST [None]
  - HYPOGLYCAEMIA [None]
  - PULSELESS ELECTRICAL ACTIVITY [None]
